FAERS Safety Report 25353761 (Version 2)
Quarter: 2025Q2

REPORT INFORMATION
  Report Type: Spontaneous
  Country: BR (occurrence: BR)
  Receive Date: 20250523
  Receipt Date: 20250528
  Transmission Date: 20250717
  Serious: Yes (Other)
  Sender: NOVO NORDISK
  Company Number: BR-NOVOPROD-1421664

PATIENT
  Sex: Female
  Weight: 90 kg

DRUGS (2)
  1. GOSERELIN [Concomitant]
     Active Substance: GOSERELIN
     Indication: Uterine leiomyoma
  2. SAXENDA [Suspect]
     Active Substance: LIRAGLUTIDE
     Indication: Weight control
     Dosage: 3 MG, QD

REACTIONS (4)
  - Myomectomy [Unknown]
  - Muscle spasms [Unknown]
  - Migraine [Unknown]
  - Amenorrhoea [Unknown]
